FAERS Safety Report 7348266-2 (Version None)
Quarter: 2011Q1

REPORT INFORMATION
  Report Type: 
  Country: None (occurrence: None)
  Receive Date: 20110222
  Receipt Date: 20100125
  Transmission Date: 20110831
  Serious: Yes (Hospitalization)
  Sender: FDA-Public Use
  Company Number: 2010021956

PATIENT
  Sex: Female

DRUGS (1)
  1. VIVAGLOBIN [Suspect]
     Dosage: ONCE SUBCUTANEOUS
     Route: 058
     Dates: start: 20100101

REACTIONS (1)
  - HYPERSENSITIVITY [None]
